FAERS Safety Report 8384574-4 (Version None)
Quarter: 2012Q2

REPORT INFORMATION
  Report Type: 
  Country: None (occurrence: None)
  Receive Date: 20120524
  Receipt Date: 20120517
  Transmission Date: 20120825
  Serious: Yes (Hospitalization, Other)
  Sender: FDA-Public Use
  Company Number: US-ABBOTT-12P-163-0909098-00

PATIENT
  Sex: Female
  Weight: 61.29 kg

DRUGS (3)
  1. ASACOL [Concomitant]
     Indication: CROHN'S DISEASE
     Dates: end: 20120201
  2. UNKNOWN SUPPLEMENTS [Concomitant]
     Indication: SUPPLEMENTATION THERAPY
  3. HUMIRA [Suspect]
     Indication: CROHN'S DISEASE
     Dates: start: 20111001

REACTIONS (13)
  - SIGMOIDITIS [None]
  - GASTROINTESTINAL EROSION [None]
  - COLITIS [None]
  - ILEITIS [None]
  - DRUG INEFFECTIVE [None]
  - EXCESSIVE GRANULATION TISSUE [None]
  - COLONIC POLYP [None]
  - INTESTINAL ULCER [None]
  - PELVIC FLUID COLLECTION [None]
  - GASTROINTESTINAL INFLAMMATION [None]
  - INFLAMMATION [None]
  - FIBRIN ABNORMAL [None]
  - PROCTITIS [None]
